FAERS Safety Report 7928834-7 (Version None)
Quarter: 2011Q4

REPORT INFORMATION
  Report Type: 
  Country: None (occurrence: None)
  Receive Date: 20111118
  Receipt Date: 20111107
  Transmission Date: 20120403
  Serious: Yes (Life-Threatening, Hospitalization)
  Sender: FDA-Public Use
  Company Number: ES-US-EMD SERONO, INC.-7095130

PATIENT
  Age: 27 Year
  Sex: Female
  Weight: 60 kg

DRUGS (1)
  1. CHORIOGONADOTROPIN ALFA [Suspect]
     Indication: IN VITRO FERTILISATION

REACTIONS (2)
  - OVARIAN HYPERSTIMULATION SYNDROME [None]
  - ACUTE RESPIRATORY DISTRESS SYNDROME [None]
